FAERS Safety Report 5471646-7 (Version None)
Quarter: 2007Q3

REPORT INFORMATION
  Report Type: 
  Country: None (occurrence: None)
  Receive Date: 20070928
  Receipt Date: 20070228
  Transmission Date: 20080115
  Serious: No
  Sender: FDA-Public Use
  Company Number: US-BRISTOL-MYERS SQUIBB COMPANY-13696497

PATIENT
  Sex: Female
  Weight: 92 kg

DRUGS (6)
  1. DEFINITY [Suspect]
     Indication: STRESS ECHOCARDIOGRAM
     Dosage: DILUTED BOLUS OF DEFINITY
     Route: 040
  2. SYNTHROID [Concomitant]
  3. LYRICA [Concomitant]
  4. MACRODANTIN [Concomitant]
  5. PAXIL [Concomitant]
  6. COUMADIN [Concomitant]

REACTIONS (3)
  - BACK PAIN [None]
  - CHEST PAIN [None]
  - FLUSHING [None]
